FAERS Safety Report 9607600 (Version 4)
Quarter: 2013Q4

REPORT INFORMATION
  Report Type: Report from Study
  Country: BE (occurrence: BE)
  Receive Date: 20131009
  Receipt Date: 20131202
  Transmission Date: 20140711
  Serious: Yes (Other)
  Sender: FDA-Public Use
  Company Number: PHHY2013BE110441

PATIENT
  Age: 50 Year
  Sex: Female

DRUGS (6)
  1. GILENYA [Suspect]
     Indication: MULTIPLE SCLEROSIS
     Dosage: 0.5 MG, QD
     Route: 048
     Dates: start: 20120817
  2. DURAGESIC [Concomitant]
  3. REDOMEX [Concomitant]
  4. LYRICA [Concomitant]
  5. LIORESAL [Concomitant]
  6. LUTENYL [Concomitant]
     Dates: start: 2010

REACTIONS (3)
  - Vaginal haemorrhage [Recovered/Resolved]
  - Uterine disorder [Recovered/Resolved]
  - Uterine polyp [Recovered/Resolved]
